FAERS Safety Report 15097290 (Version 1)
Quarter: 2018Q3

REPORT INFORMATION
  Report Type: Spontaneous
  Country: US (occurrence: US)
  Receive Date: 20180702
  Receipt Date: 20180702
  Transmission Date: 20181010
  Serious: Yes (Other)
  Sender: FDA-Public Use
  Company Number: US-APOTEX-2018AP016236

PATIENT
  Sex: Female

DRUGS (4)
  1. MIRTAZAPINE. [Suspect]
     Active Substance: MIRTAZAPINE
     Dosage: 1.875 MG, UNK
     Route: 065
     Dates: start: 20180528, end: 20180530
  2. MIRTAZAPINE. [Suspect]
     Active Substance: MIRTAZAPINE
     Dosage: 3.75 MG, UNK
     Route: 065
     Dates: start: 20180524, end: 20180527
  3. MIRTAZAPINE. [Suspect]
     Active Substance: MIRTAZAPINE
     Indication: PRODUCT USED FOR UNKNOWN INDICATION
     Dosage: 15 MG, UNK
     Route: 065
     Dates: start: 20180517, end: 20180518
  4. MIRTAZAPINE. [Suspect]
     Active Substance: MIRTAZAPINE
     Dosage: 7.5 MG, UNK
     Route: 065
     Dates: start: 20180518, end: 20180523

REACTIONS (5)
  - Depression [Unknown]
  - Pulse abnormal [Unknown]
  - Panic reaction [Unknown]
  - Withdrawal syndrome [Unknown]
  - Adverse drug reaction [Unknown]
